FAERS Safety Report 8220381-0 (Version None)
Quarter: 2012Q1

REPORT INFORMATION
  Report Type: 
  Country: None (occurrence: None)
  Receive Date: 20120320
  Receipt Date: 20120309
  Transmission Date: 20120608
  Serious: Yes (Hospitalization)
  Sender: FDA-Public Use
  Company Number: US-SANOFI-AVENTIS-2011SA036167

PATIENT
  Age: 69 Year
  Sex: Female
  Weight: 99.79 kg

DRUGS (11)
  1. SOLOSTAR [Suspect]
     Dates: start: 20110613, end: 20110627
  2. ESTROPIPATE [Concomitant]
  3. SOLOSTAR [Suspect]
     Dates: start: 20110219, end: 20110608
  4. QUINAPRIL [Concomitant]
     Indication: BLOOD PRESSURE
     Dosage: 20/25
  5. HUMALOG [Concomitant]
  6. SIMVASTATIN [Concomitant]
  7. OMEPRAZOLE [Concomitant]
     Indication: GASTRIC DISORDER
  8. LANTUS [Suspect]
     Dosage: DOSE:22 UNIT(S)
     Route: 058
  9. ALPRAZOLAM [Concomitant]
     Indication: ANXIETY
     Dosage: 1 AND A HALF TABLETS AS NEEDED
  10. LANTUS [Suspect]
     Dosage: DOSE:30 UNIT(S)
     Route: 058
     Dates: end: 20110608
  11. LANTUS [Suspect]
     Dosage: DOSE:30 UNIT(S)
     Route: 058
     Dates: start: 20110613, end: 20110627

REACTIONS (4)
  - PRURITUS [None]
  - BLOOD GLUCOSE INCREASED [None]
  - NEURALGIA [None]
  - HERNIA REPAIR [None]
